FAERS Safety Report 25877909 (Version 4)
Quarter: 2025Q4

REPORT INFORMATION
  Report Type: Report from Study
  Country: US (occurrence: US)
  Receive Date: 20251003
  Receipt Date: 20251120
  Transmission Date: 20260117
  Serious: No
  Sender: ACADIA PHARMACEUTICALS
  Company Number: US-ACADIA PHARMACEUTICALS INC.-ACA-2025-PIM-010806

PATIENT
  Sex: Female

DRUGS (13)
  1. NUPLAZID [Suspect]
     Active Substance: PIMAVANSERIN TARTRATE
     Indication: Parkinson^s disease psychosis
     Dosage: 34 MILLIGRAM, QD
     Route: 048
  2. AMANTADINE [Concomitant]
     Active Substance: AMANTADINE
  3. PEPCID [Concomitant]
     Active Substance: FAMOTIDINE
  4. MIRTAZAPINE [Concomitant]
     Active Substance: MIRTAZAPINE
  5. TYLENOL [Concomitant]
     Active Substance: ACETAMINOPHEN
  6. VITAMIN B12 [Concomitant]
     Active Substance: CYANOCOBALAMIN
  7. CLONAZEPAM [Concomitant]
     Active Substance: CLONAZEPAM
  8. RIVASTIGMINE [Concomitant]
     Active Substance: RIVASTIGMINE
  9. SODIUM CHLORIDE [Concomitant]
     Active Substance: SODIUM CHLORIDE
  10. CARBIDOPA\LEVODOPA [Concomitant]
     Active Substance: CARBIDOPA\LEVODOPA
  11. COLACE [Concomitant]
     Active Substance: DOCUSATE SODIUM
  12. CARBIDOPA\LEVODOPA [Concomitant]
     Active Substance: CARBIDOPA\LEVODOPA
  13. VYALEV [FOSCARBIDOPA;LEVODOPA] [Concomitant]

REACTIONS (4)
  - Abnormal behaviour [Unknown]
  - Anxiety [Unknown]
  - Adverse drug reaction [Unknown]
  - Confusional state [Not Recovered/Not Resolved]
